FAERS Safety Report 12566934 (Version 1)
Quarter: 2016Q3

REPORT INFORMATION
  Report Type: Spontaneous
  Country: FR (occurrence: FR)
  Receive Date: 20160718
  Receipt Date: 20160718
  Transmission Date: 20161109
  Serious: Yes (Hospitalization)
  Sender: FDA-Public Use
  Company Number: FR-TEVA-677153ISR

PATIENT
  Age: 55 Year
  Sex: Male

DRUGS (3)
  1. TRIHEXYPHENIDYL [Suspect]
     Active Substance: TRIHEXYPHENIDYL
     Indication: PARKINSON^S DISEASE
     Dosage: SINCE 2 YEARS
  2. RIVAROXABAN [Interacting]
     Active Substance: RIVAROXABAN
     Dosage: 30 MILLIGRAM DAILY;
  3. RASAGILINE [Suspect]
     Active Substance: RASAGILINE
     Indication: PARKINSON^S DISEASE
     Dosage: SINCE 2 YEARS

REACTIONS (3)
  - Abasia [Recovered/Resolved]
  - Dizziness [Unknown]
  - Drug interaction [Unknown]
